FAERS Safety Report 16077997 (Version 1)
Quarter: 2019Q1

REPORT INFORMATION
  Report Type: Spontaneous
  Country: RU (occurrence: RU)
  Receive Date: 20190315
  Receipt Date: 20190315
  Transmission Date: 20190418
  Serious: Yes (Other)
  Sender: FDA-Public Use
  Company Number: RU-JNJFOC-20190218015

PATIENT
  Age: 34 Year
  Sex: Male
  Weight: 76 kg

DRUGS (1)
  1. SIMPONI [Suspect]
     Active Substance: GOLIMUMAB
     Indication: ANKYLOSING SPONDYLITIS
     Dosage: FOR ABOUT TWO YEARS
     Route: 058
     Dates: start: 20170719

REACTIONS (4)
  - Angiopathy [Unknown]
  - Macular oedema [Unknown]
  - Retinopathy [Unknown]
  - Retinal vascular thrombosis [Unknown]
